FAERS Safety Report 5271392-9 (Version None)
Quarter: 2007Q1

REPORT INFORMATION
  Report Type: 
  Country: None (occurrence: None)
  Receive Date: 20070321
  Receipt Date: 20070309
  Transmission Date: 20070707
  Serious: Yes (Death)
  Sender: FDA-Public Use
  Company Number: PR-ELI_LILLY_AND_COMPANY-US200701006129

PATIENT
  Age: 9 Year
  Sex: Male
  Weight: 34.013 kg

DRUGS (2)
  1. STRATTERA [Suspect]
     Indication: ATTENTION DEFICIT/HYPERACTIVITY DISORDER
     Dosage: 18 MG, UNK
     Route: 048
     Dates: start: 20051029, end: 20051104
  2. STRATTERA [Suspect]
     Dosage: 25 MG, UNK
     Route: 048
     Dates: start: 20051105

REACTIONS (2)
  - COMPLETED SUICIDE [None]
  - INJURY ASPHYXIATION [None]
